FAERS Safety Report 22721323 (Version 2)
Quarter: 2024Q3

REPORT INFORMATION
  Report Type: Spontaneous
  Country: US (occurrence: US)
  Receive Date: 20230719
  Receipt Date: 20240723
  Transmission Date: 20241016
  Serious: No
  Sender: OTSUKA
  Company Number: US-OTSUKA-2023_007667

PATIENT
  Sex: Male
  Weight: 88.45 kg

DRUGS (4)
  1. REXULTI [Suspect]
     Active Substance: BREXPIPRAZOLE
     Indication: Depression
     Dosage: 0.5 MG, QD
     Route: 065
     Dates: start: 2023
  2. REXULTI [Suspect]
     Active Substance: BREXPIPRAZOLE
     Indication: Anxiety
  3. REXULTI [Suspect]
     Active Substance: BREXPIPRAZOLE
     Indication: Suicidal ideation
  4. BUSPAR [Concomitant]
     Active Substance: BUSPIRONE HYDROCHLORIDE
     Indication: Depression
     Dosage: 7.5 MG
     Route: 065

REACTIONS (4)
  - Inability to afford medication [Unknown]
  - Drug effective for unapproved indication [Unknown]
  - Product use issue [Unknown]
  - Insurance issue [Unknown]
